FAERS Safety Report 6012502-5 (Version None)
Quarter: 2008Q4

REPORT INFORMATION
  Report Type: 
  Country: None (occurrence: None)
  Receive Date: 20081218
  Receipt Date: 20081217
  Transmission Date: 20090506
  Serious: Yes (Death)
  Sender: FDA-Public Use
  Company Number: JP-ABBOTT-08P-087-0493338-00

PATIENT
  Age: 63 Year
  Sex: Male

DRUGS (1)
  1. CEFZON CAPSULE [Suspect]
     Indication: DRUG USE FOR UNKNOWN INDICATION
     Route: 048
     Dates: start: 20070601, end: 20070601

REACTIONS (1)
  - TOXIC EPIDERMAL NECROLYSIS [None]
